FAERS Safety Report 9680972 (Version 1)
Quarter: 2013Q4

REPORT INFORMATION
  Report Type: Spontaneous
  Country: US (occurrence: US)
  Receive Date: 20131111
  Receipt Date: 20131111
  Transmission Date: 20140711
  Serious: No
  Sender: FDA-Public Use
  Company Number: US-PFIZER INC-2013316834

PATIENT
  Age: 74 Year
  Sex: Female
  Weight: 106.6 kg

DRUGS (2)
  1. LIPITOR [Suspect]
     Indication: BLOOD CHOLESTEROL INCREASED
     Dosage: 10 MG, 1X/DAY
     Route: 048
  2. BABY ASPIRIN [Concomitant]
     Dosage: UNK, 1X/DAY

REACTIONS (1)
  - Arthritis [Not Recovered/Not Resolved]
